FAERS Safety Report 5381567-6 (Version None)
Quarter: 2007Q2

REPORT INFORMATION
  Report Type: 
  Country: None (occurrence: None)
  Receive Date: 20070629
  Receipt Date: 20070425
  Transmission Date: 20071010
  Serious: Yes (Other)
  Sender: FDA-Public Use
  Company Number: 2007033588

PATIENT
  Sex: Female

DRUGS (2)
  1. ZOLOFT [Suspect]
     Indication: ANXIETY
     Dosage: 10 MG (10 MEQ, 1 IN 1 D)
     Dates: start: 20030901, end: 20061201
  2. NEXIUM [Concomitant]

REACTIONS (3)
  - ANGER [None]
  - EMOTIONAL DISTRESS [None]
  - PARANOIA [None]
